FAERS Safety Report 20744849 (Version 1)
Quarter: 2022Q2

REPORT INFORMATION
  Report Type: Spontaneous
  Country: CN (occurrence: CN)
  Receive Date: 20220425
  Receipt Date: 20220425
  Transmission Date: 20220721
  Serious: Yes (Other)
  Sender: FDA-Public Use
  Company Number: CN-PFIZER INC-202200581754

PATIENT
  Age: 29 Year
  Sex: Female
  Weight: 58 kg

DRUGS (1)
  1. METHYLPREDNISOLONE SODIUM SUCCINATE [Suspect]
     Active Substance: METHYLPREDNISOLONE SODIUM SUCCINATE
     Indication: Steroid therapy
     Dosage: 500 MG, 1X/DAY
     Route: 041
     Dates: start: 20220410

REACTIONS (6)
  - Hypokalaemia [Recovering/Resolving]
  - Facial paralysis [Recovering/Resolving]
  - Insomnia [Recovering/Resolving]
  - Dysphoria [Recovering/Resolving]
  - Flushing [Recovering/Resolving]
  - Muscular weakness [Recovering/Resolving]

NARRATIVE: CASE EVENT DATE: 20220410
